FAERS Safety Report 8713791 (Version 3)
Quarter: 2012Q4

REPORT INFORMATION
  Report Type: 
  Country: JP (occurrence: JP)
  Receive Date: 20120808
  Receipt Date: 20120919
  Transmission Date: 20130627
  Serious: Yes (Death)
  Sender: FDA-Public Use
  Company Number: JP-AMGEN-JPNCT2012049382

PATIENT
  Age: 70 Year
  Sex: Male
  Weight: 50 kg

DRUGS (18)
  1. PANITUMUMAB [Suspect]
     Indication: COLORECTAL CANCER
     Dosage: 6 mg/kg, q2wk
     Route: 041
     Dates: start: 20100804, end: 20120726
  2. IRINOTECAN HYDROCHLORIDE [Concomitant]
     Indication: COLORECTAL CANCER
     Route: 041
     Dates: start: 20100804
  3. FLUOROURACIL [Concomitant]
     Indication: COLORECTAL CANCER
     Route: 040
     Dates: start: 20100804
  4. FLUOROURACIL [Concomitant]
     Route: 041
     Dates: start: 20100804
  5. FLUOROURACIL [Concomitant]
     Dosage: UNK
     Route: 040
     Dates: start: 20120531
  6. FLUOROURACIL [Concomitant]
     Dosage: UNK
     Route: 041
     Dates: start: 20120531
  7. CALCIUM LEVOFOLINATE [Concomitant]
     Indication: COLORECTAL CANCER
     Route: 041
     Dates: start: 20100804
  8. CALCIUM LEVOFOLINATE [Concomitant]
     Dosage: UNK
     Route: 041
     Dates: start: 20120531
  9. ELPLAT [Concomitant]
     Indication: COLORECTAL CANCER
     Route: 041
     Dates: start: 20120531, end: 20120726
  10. CORTICOSTEROIDS [Concomitant]
     Indication: PROPHYLAXIS
     Dosage: UNK
     Route: 065
  11. ALMETA [Concomitant]
     Dosage: UNK
     Route: 062
  12. ANTEBATE [Concomitant]
     Dosage: UNK
     Route: 062
  13. HIRUDOID [Concomitant]
     Dosage: UNK
     Route: 062
  14. MINOMYCIN [Concomitant]
     Dosage: UNK
     Route: 048
  15. GOSHAJINKIGAN [Concomitant]
     Route: 048
  16. GENTACIN [Concomitant]
     Dosage: UNK
     Route: 062
  17. PROMAC [Concomitant]
     Dosage: UNK
     Route: 048
  18. ALLOID G [Concomitant]
     Dosage: UNK
     Route: 049

REACTIONS (7)
  - Interstitial lung disease [Fatal]
  - Hepatic function abnormal [Recovered/Resolved]
  - Dermatitis acneiform [Recovered/Resolved]
  - Paronychia [Recovered/Resolved]
  - Hypomagnesaemia [Recovered/Resolved]
  - Pneumonia [Recovered/Resolved]
  - Stomatitis [Recovered/Resolved]
